FAERS Safety Report 6994063-7 (Version None)
Quarter: 2010Q3

REPORT INFORMATION
  Report Type: 
  Country: None (occurrence: None)
  Receive Date: 20100917
  Receipt Date: 20090721
  Transmission Date: 20110219
  Serious: Yes (Hospitalization)
  Sender: FDA-Public Use
  Company Number: US-ASTRAZENECA-2009UW02011

PATIENT
  Age: 10900 Day
  Sex: Female

DRUGS (7)
  1. SEROQUEL [Suspect]
     Indication: SLEEP DISORDER
     Route: 048
     Dates: start: 20010101
  2. SEROQUEL [Suspect]
     Route: 048
     Dates: start: 20020604
  3. MEDROXYPROGESTERONE [Concomitant]
     Route: 048
     Dates: start: 20020516
  4. CELEXA [Concomitant]
     Route: 048
     Dates: start: 20020604
  5. LORAZEPAM [Concomitant]
     Route: 048
     Dates: start: 20020604
  6. TEMAZEPAM [Concomitant]
     Route: 048
     Dates: start: 20020604
  7. IBUPROFEN [Concomitant]
     Route: 048
     Dates: start: 20020604

REACTIONS (2)
  - DIABETIC KETOACIDOSIS [None]
  - TYPE 2 DIABETES MELLITUS [None]
